FAERS Safety Report 7929094-3 (Version None)
Quarter: 2011Q4

REPORT INFORMATION
  Report Type: 
  Country: None (occurrence: None)
  Receive Date: 20111119
  Receipt Date: 20111114
  Transmission Date: 20120403
  Serious: Yes (Death, Other)
  Sender: FDA-Public Use
  Company Number: JP-ASTRAZENECA-2011SE68923

PATIENT
  Age: 91 Year
  Sex: Female

DRUGS (3)
  1. NEXIUM [Suspect]
     Indication: DUODENAL ULCER
     Route: 048
     Dates: start: 20111109, end: 20111110
  2. IRON SUCROSE [Concomitant]
     Route: 065
     Dates: start: 20111102
  3. INFLUENZA HA VACCINE [Concomitant]
     Dosage: DOSE UNKNOWN
     Route: 042
     Dates: start: 20111110, end: 20111110

REACTIONS (2)
  - HYPOTHERMIA [None]
  - DEATH [None]
